FAERS Safety Report 6475317-X (Version None)
Quarter: 2009Q4

REPORT INFORMATION
  Report Type: 
  Country: None (occurrence: None)
  Receive Date: 20091204
  Receipt Date: 20090417
  Transmission Date: 20100525
  Serious: Yes (Hospitalization)
  Sender: FDA-Public Use
  Company Number: BR-ELI_LILLY_AND_COMPANY-BR200904003413

PATIENT
  Sex: Female
  Weight: 53 kg

DRUGS (7)
  1. FORTEO [Suspect]
     Indication: OSTEOPOROSIS
     Dosage: 20 UG, DAILY (1/D)
     Route: 058
     Dates: start: 20081217
  2. DEPAKOTE [Concomitant]
     Indication: CONVULSION
     Dosage: 750 MG, 2/D
     Route: 065
  3. GARDENAL [Concomitant]
     Indication: CONVULSION
     Dosage: 50 GTT, DAILY (1/D)
     Route: 048
  4. PURAN T4 [Concomitant]
     Dosage: 100 MG, DAILY (1/D)
     Route: 048
  5. ATENOLOL [Concomitant]
     Indication: HYPERTENSION
     Dosage: 50 MG, DAILY (1/D)
     Route: 048
  6. OSCAL [Concomitant]
     Dosage: 50 MG, DAILY (1/D)
     Route: 065
  7. FOLIC ACID [Concomitant]
     Dosage: 5 MG, DAILY (1/D)
     Route: 065

REACTIONS (6)
  - DEHYDRATION [None]
  - DYSURIA [None]
  - INJECTION SITE PAIN [None]
  - NAUSEA [None]
  - OEDEMA PERIPHERAL [None]
  - VOMITING [None]
